FAERS Safety Report 11704674 (Version 7)
Quarter: 2017Q3

REPORT INFORMATION
  Report Type: Spontaneous
  Country: US (occurrence: US)
  Receive Date: 20151106
  Receipt Date: 20170802
  Transmission Date: 20171127
  Serious: Yes (Death, Hospitalization, Congenital Anomaly, Other)
  Sender: FDA-Public Use
  Company Number: PHEH2015US022716

PATIENT
  Sex: Male

DRUGS (2)
  1. ONDANSETRON HYDROCHLORIDE. [Suspect]
     Active Substance: ONDANSETRON HYDROCHLORIDE
     Indication: FOETAL EXPOSURE DURING PREGNANCY
     Route: 064
  2. ZOFRAN [Suspect]
     Active Substance: ONDANSETRON HYDROCHLORIDE
     Indication: FOETAL EXPOSURE DURING PREGNANCY
     Dosage: MOTHER DOSE: 4MG TO 8MG, THRICE DAILY
     Route: 064

REACTIONS (14)
  - Foetal exposure during pregnancy [Unknown]
  - Ventricular septal defect [Unknown]
  - Ventricular tachyarrhythmia [Unknown]
  - Transient tachypnoea of the newborn [Unknown]
  - Hypoplastic left heart syndrome [Fatal]
  - Pain [Unknown]
  - Heart disease congenital [Unknown]
  - Congenital anomaly [Unknown]
  - Atrial septal defect [Unknown]
  - Injury [Unknown]
  - Anhedonia [Unknown]
  - Emotional distress [Unknown]
  - Anxiety [Unknown]
  - Cytogenetic abnormality [Unknown]
